FAERS Safety Report 8416258-8 (Version None)
Quarter: 2012Q2

REPORT INFORMATION
  Report Type: 
  Country: None (occurrence: None)
  Receive Date: 20120606
  Receipt Date: 20120525
  Transmission Date: 20120825
  Serious: Yes (Hospitalization)
  Sender: FDA-Public Use
  Company Number: HR-ELI_LILLY_AND_COMPANY-HR201205008956

PATIENT
  Age: 34 Year
  Sex: Female
  Weight: 90 kg

DRUGS (4)
  1. NOZINAN [Concomitant]
     Dosage: 200 MG, QD
     Route: 048
  2. TEGRETOL [Concomitant]
     Dosage: 500 MG, QD
     Route: 048
  3. HALDOL [Concomitant]
     Dosage: 10 MG, QD
     Route: 048
  4. OLANZAPINE [Suspect]
     Dosage: 20 MG, QD
     Route: 048

REACTIONS (2)
  - NEUROLEPTIC MALIGNANT SYNDROME [None]
  - WHITE BLOOD CELL COUNT DECREASED [None]
